FAERS Safety Report 9786901 (Version 3)
Quarter: 2014Q1

REPORT INFORMATION
  Report Type: Report from Study
  Country: US (occurrence: US)
  Receive Date: 20131227
  Receipt Date: 20140303
  Transmission Date: 20141002
  Serious: Yes (Other)
  Sender: FDA-Public Use
  Company Number: US-ABBVIE-13P-163-1167409-00

PATIENT
  Age: 32 Year
  Sex: Male

DRUGS (3)
  1. HUMIRA [Suspect]
     Indication: CROHN^S DISEASE
     Dates: start: 20130910
  2. HUMIRA [Suspect]
     Dates: start: 20131228
  3. STEROID [Concomitant]
     Indication: PRODUCT USED FOR UNKNOWN INDICATION
     Dosage: 10MG ON A TAPERED DOSE

REACTIONS (3)
  - Small intestinal stenosis [Recovering/Resolving]
  - Drug dose omission [Recovered/Resolved]
  - Hypophagia [Unknown]
